FAERS Safety Report 25774531 (Version 1)
Quarter: 2025Q3

REPORT INFORMATION
  Report Type: Spontaneous
  Country: BR (occurrence: BR)
  Receive Date: 20250908
  Receipt Date: 20250908
  Transmission Date: 20251020
  Serious: Yes (Other)
  Sender: BAYER HEALTHCARE PHARMACEUTICALS INC.
  Company Number: BR-BAYER-2025A116113

PATIENT
  Age: 57 Year
  Sex: Female
  Weight: 52.5 kg

DRUGS (6)
  1. STIVARGA [Suspect]
     Active Substance: REGORAFENIB MONOHYDRATE
     Indication: Gastrointestinal carcinoma
     Dosage: 120 MG, QD
     Route: 048
     Dates: start: 202507, end: 2025
  2. STIVARGA [Suspect]
     Active Substance: REGORAFENIB MONOHYDRATE
     Indication: Metastases to lung
     Dosage: 160 MG, QD
     Route: 048
     Dates: start: 2025
  3. STIVARGA [Suspect]
     Active Substance: REGORAFENIB MONOHYDRATE
     Indication: Metastases to liver
  4. ETORICOXIB [Concomitant]
     Active Substance: ETORICOXIB
  5. DIPYRONE [Concomitant]
     Active Substance: DIPYRONE
  6. TRAMADOL [Concomitant]
     Active Substance: TRAMADOL

REACTIONS (4)
  - Hypertension [Unknown]
  - Malaise [Unknown]
  - Constipation [Recovering/Resolving]
  - Product use issue [None]

NARRATIVE: CASE EVENT DATE: 20250701
